FAERS Safety Report 14019017 (Version 1)
Quarter: 2017Q3

REPORT INFORMATION
  Report Type: Report from Study
  Country: US (occurrence: US)
  Receive Date: 20170928
  Receipt Date: 20170928
  Transmission Date: 20171128
  Serious: Yes (Other)
  Sender: FDA-Public Use
  Company Number: US-TORRENT-00003437

PATIENT
  Age: 26 Year
  Sex: Male

DRUGS (4)
  1. LAMOTRIGINE. [Suspect]
     Active Substance: LAMOTRIGINE
  2. PREGABALIN. [Concomitant]
     Active Substance: PREGABALIN
  3. ZONISAMIDE. [Concomitant]
     Active Substance: ZONISAMIDE
  4. VALPROATE [Concomitant]
     Active Substance: VALPROIC ACID

REACTIONS (6)
  - Somnolence [Unknown]
  - Dysarthria [Unknown]
  - Toxicity to various agents [Unknown]
  - Ataxia [Unknown]
  - Dizziness [Unknown]
  - Nausea [Unknown]
